FAERS Safety Report 13502229 (Version 1)
Quarter: 2017Q2

REPORT INFORMATION
  Report Type: Spontaneous
  Country: US (occurrence: US)
  Receive Date: 20170502
  Receipt Date: 20170502
  Transmission Date: 20170830
  Serious: No
  Sender: FDA-Public Use
  Company Number: US-009507513-1704USA006141

PATIENT
  Age: 90 Year
  Sex: Female
  Weight: 61.22 kg

DRUGS (4)
  1. BELSOMRA [Suspect]
     Active Substance: SUVOREXANT
     Dosage: TOOK TWO 10MG TABLET AT THE SAME TIME
     Route: 048
     Dates: start: 20170412, end: 20170412
  2. BELSOMRA [Suspect]
     Active Substance: SUVOREXANT
     Dosage: TOOK ANOTHER 10 MG TABLET
     Route: 048
     Dates: start: 20170412, end: 20170412
  3. BELSOMRA [Suspect]
     Active Substance: SUVOREXANT
     Indication: INSOMNIA
     Dosage: ONE 10MG TABLET
     Route: 048
     Dates: start: 20170411, end: 20170411
  4. TEMAZEPAM. [Concomitant]
     Active Substance: TEMAZEPAM
     Indication: INSOMNIA
     Dosage: UNK
     Dates: end: 20170410

REACTIONS (4)
  - Expired product administered [Unknown]
  - Off label use [Unknown]
  - Drug ineffective [Unknown]
  - Thinking abnormal [Unknown]

NARRATIVE: CASE EVENT DATE: 20170411
